FAERS Safety Report 18472854 (Version 1)
Quarter: 2020Q4

REPORT INFORMATION
  Report Type: Spontaneous
  Country: US (occurrence: US)
  Receive Date: 20201105
  Receipt Date: 20201105
  Transmission Date: 20210114
  Serious: No
  Sender: FDA-Public Use
  Company Number: None

PATIENT
  Sex: Female

DRUGS (22)
  1. AMBRISENTAN 10MG TAB [Suspect]
     Active Substance: AMBRISENTAN
     Indication: PULMONARY ARTERIAL HYPERTENSION
     Route: 048
  2. CEFPODOXIME [Concomitant]
     Active Substance: CEFPODOXIME
  3. LEVOTHYROXINE. [Concomitant]
     Active Substance: LEVOTHYROXINE
  4. COENZYME Q10 [Concomitant]
     Active Substance: DIETARY SUPPLEMENT\UBIDECARENONE
  5. PROBIOTIC [Concomitant]
     Active Substance: PROBIOTICS NOS
  6. VITAMIN E [Concomitant]
     Active Substance: .ALPHA.-TOCOPHEROL
  7. ZINC. [Concomitant]
     Active Substance: ZINC
  8. MAGNESIUM [Concomitant]
     Active Substance: MAGNESIUM
  9. HYDROCORTISONE. [Concomitant]
     Active Substance: HYDROCORTISONE
  10. TADALAFIL. [Concomitant]
     Active Substance: TADALAFIL
  11. LIIOTHYRONINE [Concomitant]
  12. VITAMIN D3 [Concomitant]
     Active Substance: CHOLECALCIFEROL
  13. CURCUMIN [Concomitant]
     Active Substance: CURCUMIN
  14. ECHINACEA [Concomitant]
     Active Substance: ECHINACEA, UNSPECIFIED
  15. OIL OF OREGANO [Concomitant]
  16. IRON [Concomitant]
     Active Substance: IRON
  17. MULTIVIT [Concomitant]
     Active Substance: VITAMINS
  18. BUMETANIDE. [Concomitant]
     Active Substance: BUMETANIDE
  19. VITAMIN C [Concomitant]
     Active Substance: ASCORBIC ACID
  20. VITAMIN K [Concomitant]
     Active Substance: PHYTONADIONE
  21. FISH OIL [Concomitant]
     Active Substance: FISH OIL
  22. VITAMIN A [Concomitant]
     Active Substance: VITAMIN A

REACTIONS (1)
  - Swelling [None]
